FAERS Safety Report 20729461 (Version 2)
Quarter: 2022Q2

REPORT INFORMATION
  Report Type: Report from Study
  Country: MX (occurrence: MX)
  Receive Date: 20220420
  Receipt Date: 20220602
  Transmission Date: 20220721
  Serious: Yes (Hospitalization, Other)
  Sender: FDA-Public Use
  Company Number: MX-NOVARTISPH-NVSC2022MX091412

PATIENT
  Age: 71 Year
  Sex: Female
  Weight: 84 kg

DRUGS (7)
  1. METFORMIN HYDROCHLORIDE\VILDAGLIPTIN [Suspect]
     Active Substance: METFORMIN HYDROCHLORIDE\VILDAGLIPTIN
     Indication: Diabetes mellitus
     Dosage: 1 DOSAGE FORM, QD
     Route: 048
     Dates: start: 2002
  2. METFORMIN HYDROCHLORIDE\VILDAGLIPTIN [Suspect]
     Active Substance: METFORMIN HYDROCHLORIDE\VILDAGLIPTIN
     Dosage: 1 DOSAGE FORM, BID
     Route: 065
  3. METFORMIN HYDROCHLORIDE\VILDAGLIPTIN [Suspect]
     Active Substance: METFORMIN HYDROCHLORIDE\VILDAGLIPTIN
     Dosage: 1 DOSAGE FORM, QD
     Route: 048
     Dates: start: 2020, end: 20220331
  4. METFORMIN HYDROCHLORIDE\VILDAGLIPTIN [Suspect]
     Active Substance: METFORMIN HYDROCHLORIDE\VILDAGLIPTIN
     Dosage: 1 DOSAGE FORM, Q12H
     Route: 048
     Dates: start: 20220401
  5. CARVEDILOL [Concomitant]
     Active Substance: CARVEDILOL
     Indication: Atrioventricular block
     Dosage: 0.5 DOSAGE FORM (STARTED 18 YEARS AGO)
     Route: 048
  6. IMDUR [Concomitant]
     Active Substance: ISOSORBIDE MONONITRATE
     Indication: Atrioventricular block
     Dosage: 1 DOSAGE FORM, QD (18 YEARS AGO)
     Route: 065
  7. ASPIRIN [Concomitant]
     Active Substance: ASPIRIN
     Indication: Coagulopathy
     Dosage: 1 DOSAGE FORM, QD (STARTED 18 YEARS AGO)
     Route: 065

REACTIONS (5)
  - Diabetic metabolic decompensation [Recovered/Resolved]
  - Bladder discomfort [Recovered/Resolved]
  - Constipation [Unknown]
  - Stress [Not Recovered/Not Resolved]
  - Anxiety [Recovering/Resolving]

NARRATIVE: CASE EVENT DATE: 20210701
